FAERS Safety Report 7867215-1 (Version None)
Quarter: 2011Q4

REPORT INFORMATION
  Report Type: 
  Country: None (occurrence: None)
  Receive Date: 20111028
  Receipt Date: 20111019
  Transmission Date: 20120403
  Serious: Yes (Other)
  Sender: FDA-Public Use
  Company Number: JP-GLAXOSMITHKLINE-B0731938A

PATIENT
  Sex: Male

DRUGS (4)
  1. LAMICTAL [Suspect]
     Dosage: 50MG PER DAY
     Route: 048
     Dates: start: 20110627, end: 20110704
  2. LAMICTAL [Suspect]
     Indication: EPILEPSY
     Dosage: 50MG PER DAY
     Route: 048
     Dates: start: 20110530, end: 20110605
  3. DEPAKENE [Concomitant]
     Indication: EPILEPSY
     Dosage: 1200MG PER DAY
     Route: 048
     Dates: start: 20091201
  4. LAMICTAL [Suspect]
     Dosage: 100MG PER DAY
     Route: 048
     Dates: start: 20110606, end: 20110626

REACTIONS (6)
  - RASH MACULO-PAPULAR [None]
  - LIP BLISTER [None]
  - MUCOSAL EROSION [None]
  - STEVENS-JOHNSON SYNDROME [None]
  - RASH [None]
  - SOMNOLENCE [None]
